FAERS Safety Report 8573031-8 (Version None)
Quarter: 2012Q3

REPORT INFORMATION
  Report Type: 
  Country: None (occurrence: None)
  Receive Date: 20120806
  Receipt Date: 20120802
  Transmission Date: 20120928
  Serious: Yes (Other)
  Sender: FDA-Public Use
  Company Number: US-BAYER-2012-078544

PATIENT
  Age: 35 Year
  Sex: Female

DRUGS (3)
  1. BETASERON [Suspect]
     Indication: MULTIPLE SCLEROSIS
     Dosage: UNK
     Dates: start: 19970305, end: 20020415
  2. BETASERON [Suspect]
     Dosage: 8 MIU, QOD
     Route: 058
     Dates: start: 20120329
  3. BETASERON [Suspect]
     Dosage: UNK
     Dates: start: 20070524, end: 20090201

REACTIONS (3)
  - CYST [None]
  - GINGIVAL SWELLING [None]
  - GINGIVAL PAIN [None]
